FAERS Safety Report 7348265-0 (Version None)
Quarter: 2011Q1

REPORT INFORMATION
  Report Type: 
  Country: None (occurrence: None)
  Receive Date: 20110225
  Receipt Date: 20101231
  Transmission Date: 20110831
  Serious: No
  Sender: FDA-Public Use
  Company Number: 320985

PATIENT
  Age: 61 Year
  Sex: Female

DRUGS (2)
  1. ASPIRIN [Concomitant]
  2. VICTOZA [Suspect]
     Indication: TYPE 2 DIABETES MELLITUS
     Dosage: 1.2 U, QD, SUBCUTANEOUS
     Route: 058
     Dates: start: 20101217

REACTIONS (1)
  - INJECTION SITE HAEMATOMA [None]
